FAERS Safety Report 25469530 (Version 1)
Quarter: 2025Q2

REPORT INFORMATION
  Report Type: Spontaneous
  Country: US (occurrence: None)
  Receive Date: 20250623
  Receipt Date: 20250623
  Transmission Date: 20250716
  Serious: No
  Sender: FDA-CTU
  Company Number: None

PATIENT
  Age: 75 Year
  Sex: Male
  Weight: 83.25 kg

DRUGS (11)
  1. BACLOFEN [Suspect]
     Active Substance: BACLOFEN
     Indication: Back pain
     Dosage: 1 TABLET(S) TWICE A DAY ORAL ?
     Route: 048
     Dates: start: 20250619, end: 20250621
  2. ATORVASTATIN [Concomitant]
     Active Substance: ATORVASTATIN
  3. LISINOPRIL [Concomitant]
     Active Substance: LISINOPRIL
  4. DONEPEZIL [Concomitant]
     Active Substance: DONEPEZIL
  5. CELECOXIB [Concomitant]
     Active Substance: CELECOXIB
  6. TYLENOL ARTHRITIS PAIN [Concomitant]
     Active Substance: ACETAMINOPHEN
  7. CALCIUM [Concomitant]
     Active Substance: CALCIUM
  8. ZINC [Concomitant]
     Active Substance: ZINC
  9. VITAMIN D3 [Concomitant]
     Active Substance: CHOLECALCIFEROL
  10. B12 [Concomitant]
  11. MINERALS\VITAMINS [Concomitant]
     Active Substance: MINERALS\VITAMINS

REACTIONS (5)
  - Hallucination, auditory [None]
  - Fear [None]
  - Crying [None]
  - Pyrexia [None]
  - Chills [None]

NARRATIVE: CASE EVENT DATE: 20250620
